FAERS Safety Report 12244381 (Version 2)
Quarter: 2016Q2

REPORT INFORMATION
  Report Type: Spontaneous
  Country: US (occurrence: US)
  Receive Date: 20160407
  Receipt Date: 20160509
  Transmission Date: 20160815
  Serious: Yes (Other)
  Sender: FDA-Public Use
  Company Number: US-BEH-2016060733

PATIENT
  Age: 59 Year
  Sex: Female
  Weight: 55 kg

DRUGS (23)
  1. CYTOMEL [Concomitant]
     Active Substance: LIOTHYRONINE SODIUM
  2. KLONOPIN [Concomitant]
     Active Substance: CLONAZEPAM
  3. ALLEGRA [Concomitant]
     Active Substance: FEXOFENADINE HYDROCHLORIDE
  4. HIZENTRA [Suspect]
     Active Substance: HUMAN IMMUNOGLOBULIN G
     Indication: SELECTIVE IGG SUBCLASS DEFICIENCY
     Route: 058
  5. REMERON [Concomitant]
     Active Substance: MIRTAZAPINE
  6. DEXTROMETHORPHAN [Concomitant]
     Active Substance: DEXTROMETHORPHAN
  7. KLONOPIN [Concomitant]
     Active Substance: CLONAZEPAM
  8. LACTULOSE. [Concomitant]
     Active Substance: LACTULOSE
  9. LYRICA [Concomitant]
     Active Substance: PREGABALIN
  10. ANAFRANIL [Concomitant]
     Active Substance: CLOMIPRAMINE HYDROCHLORIDE
  11. LIDOCAINE/PRILOCAINE [Concomitant]
  12. IMODIUM [Concomitant]
     Active Substance: LOPERAMIDE HYDROCHLORIDE
  13. GLUCONATE [Concomitant]
     Active Substance: GLUCONATE
  14. ACETAMINOPHEN. [Concomitant]
     Active Substance: ACETAMINOPHEN
  15. DIPHENHYDRAMINE. [Concomitant]
     Active Substance: DIPHENHYDRAMINE
  16. SINGULAIR [Concomitant]
     Active Substance: MONTELUKAST SODIUM
  17. SYNTHROID [Concomitant]
     Active Substance: LEVOTHYROXINE SODIUM
  18. QUINIDINE [Concomitant]
     Active Substance: QUINIDINE
  19. DEXTROAMP-AMPHET ER [Concomitant]
     Active Substance: AMPHETAMINE ASPARTATE\DEXTROAMPHETAMINE SACCHARATE
  20. EFFEXOR XR [Concomitant]
     Active Substance: VENLAFAXINE HYDROCHLORIDE
  21. LIDOCAINE. [Concomitant]
     Active Substance: LIDOCAINE
  22. LITHIUM CARBONATE. [Concomitant]
     Active Substance: LITHIUM CARBONATE
  23. EPIPEN [Concomitant]
     Active Substance: EPINEPHRINE

REACTIONS (2)
  - Meningioma benign [Unknown]
  - Infusion site bruising [Unknown]

NARRATIVE: CASE EVENT DATE: 20160316
